FAERS Safety Report 25936331 (Version 1)
Quarter: 2025Q4

REPORT INFORMATION
  Report Type: Report from Study
  Country: EU (occurrence: EU)
  Receive Date: 20251017
  Receipt Date: 20251017
  Transmission Date: 20260118
  Serious: Yes (Other)
  Sender: BRISTOL-MYERS SQUIBB COMPANY
  Company Number: EU-BRISTOL-MYERS SQUIBB COMPANY-2025-126307

PATIENT
  Age: 60 Year
  Sex: Male
  Weight: 88 kg

DRUGS (1)
  1. MAVACAMTEN [Suspect]
     Active Substance: MAVACAMTEN
     Indication: Hypertrophic cardiomyopathy

REACTIONS (3)
  - Systolic dysfunction [Unknown]
  - Ejection fraction decreased [Recovered/Resolved]
  - Atrial fibrillation [Unknown]

NARRATIVE: CASE EVENT DATE: 20250812
